FAERS Safety Report 9733691 (Version 1)
Quarter: 2013Q4

REPORT INFORMATION
  Report Type: Spontaneous
  Country: US (occurrence: US)
  Receive Date: 20131205
  Receipt Date: 20131205
  Transmission Date: 20140711
  Serious: Yes (Other)
  Sender: FDA-Public Use
  Company Number: US-JNJFOC-20131116582

PATIENT
  Sex: Female
  Weight: 54.43 kg

DRUGS (2)
  1. FENTANYL TRANSDERMAL SYSTEM [Suspect]
     Indication: PAIN
     Route: 062
  2. FENTANYL TRANSDERMAL SYSTEM [Suspect]
     Indication: PAIN
     Route: 062

REACTIONS (5)
  - Lymphoma [Not Recovered/Not Resolved]
  - Palpitations [Recovered/Resolved]
  - Malaise [Not Recovered/Not Resolved]
  - Headache [Recovered/Resolved]
  - Pain [Not Recovered/Not Resolved]
